FAERS Safety Report 17375856 (Version 2)
Quarter: 2020Q1

REPORT INFORMATION
  Report Type: Spontaneous
  Country: US (occurrence: US)
  Receive Date: 20200206
  Receipt Date: 20200306
  Transmission Date: 20200409
  Serious: No
  Sender: FDA-Public Use
  Company Number: US-BIOGEN-2018BI00590180

PATIENT
  Sex: Female

DRUGS (1)
  1. TYSABRI [Suspect]
     Active Substance: NATALIZUMAB
     Indication: MULTIPLE SCLEROSIS
     Route: 050
     Dates: start: 20180524

REACTIONS (6)
  - Hypersensitivity [Unknown]
  - Malaise [Not Recovered/Not Resolved]
  - Sinusitis [Unknown]
  - Anxiety [Unknown]
  - Fatigue [Unknown]
  - Headache [Unknown]
